FAERS Safety Report 8464689-2 (Version None)
Quarter: 2012Q2

REPORT INFORMATION
  Report Type: 
  Country: None (occurrence: None)
  Receive Date: 20120626
  Receipt Date: 20120621
  Transmission Date: 20120825
  Serious: Yes (Other)
  Sender: FDA-Public Use
  Company Number: US-PFIZER INC-2012150196

PATIENT
  Sex: Male

DRUGS (2)
  1. GEODON [Suspect]
     Dosage: 80 MG, 2X/DAY
  2. GEODON [Suspect]
     Dosage: 100 MG, 3X/DAY

REACTIONS (6)
  - DIARRHOEA [None]
  - CONSTIPATION [None]
  - GAIT DISTURBANCE [None]
  - INSOMNIA [None]
  - SPEECH DISORDER [None]
  - CEREBROVASCULAR ACCIDENT [None]
